FAERS Safety Report 6492883-9 (Version None)
Quarter: 2009Q4

REPORT INFORMATION
  Report Type: 
  Country: None (occurrence: None)
  Receive Date: 20091214
  Receipt Date: 20091201
  Transmission Date: 20100525
  Serious: Yes (Other)
  Sender: FDA-Public Use
  Company Number: PHHY2009DE53048

PATIENT
  Sex: Male
  Weight: 80 kg

DRUGS (18)
  1. TASIGNA [Suspect]
     Indication: CHRONIC MYELOID LEUKAEMIA
     Dosage: 400 MG/DAY
     Route: 048
     Dates: start: 20081210, end: 20090819
  2. TASIGNA [Suspect]
     Dosage: 200 MG/DAY
     Route: 048
     Dates: start: 20090820, end: 20091104
  3. HYDROCORTISON [Concomitant]
     Dosage: UNK
     Dates: start: 20081029, end: 20090121
  4. RANITIDINE HCL [Concomitant]
     Dosage: UNK
     Dates: start: 20091029
  5. COTRIM [Concomitant]
     Dosage: UNK
     Dates: start: 20081029, end: 20090121
  6. OMNIC [Concomitant]
     Dosage: UNK
     Dates: start: 20081029
  7. L-THYROXIN [Concomitant]
     Dosage: UNK
     Dates: start: 20081029
  8. CALCIUM [Concomitant]
     Dosage: UNK
     Dates: start: 20081029
  9. VIGANTOLETTEN [Concomitant]
     Dosage: UNK
     Dates: start: 20081029
  10. MAGNESIUM [Concomitant]
     Dosage: UNK
     Dates: start: 20091029
  11. MAALOXAN [Concomitant]
     Dosage: UNK
     Dates: start: 20081029
  12. ACYCLOVIR [Concomitant]
     Dosage: UNK
     Dates: start: 20081029
  13. ASPIRIN [Concomitant]
     Dosage: UNK
     Dates: start: 20081029
  14. NEUROBION FORTE [Concomitant]
     Dosage: UNK
     Dates: start: 20081029
  15. CANDIO-HERMAL [Concomitant]
     Dosage: UNK
     Dates: start: 20081029, end: 20090121
  16. FLUCONAZOLE [Concomitant]
     Dosage: UNK
     Dates: start: 20081029, end: 20090121
  17. AMOXICILLIN AND CLAVULANATE POTASSIUM [Concomitant]
     Dosage: UNK
     Dates: start: 20090421, end: 20090504
  18. AMOXICILLIN [Concomitant]
     Dosage: UNK
     Dates: start: 20090729, end: 20090802

REACTIONS (21)
  - ADRENAL INSUFFICIENCY [None]
  - APHASIA [None]
  - BACK PAIN [None]
  - CHEST PAIN [None]
  - DISTURBANCE IN ATTENTION [None]
  - DIZZINESS [None]
  - DYSPNOEA [None]
  - ERYTHEMA NODOSUM [None]
  - FATIGUE [None]
  - FEELING COLD [None]
  - HAEMORRHOIDS [None]
  - HEPATIC PAIN [None]
  - HYPERHIDROSIS [None]
  - NASOPHARYNGITIS [None]
  - NAUSEA [None]
  - PENIS DISORDER [None]
  - PERIPHERAL ARTERIAL OCCLUSIVE DISEASE [None]
  - RESTLESSNESS [None]
  - SINUSITIS [None]
  - TETANY [None]
  - VOMITING [None]
